FAERS Safety Report 6295505-5 (Version None)
Quarter: 2009Q3

REPORT INFORMATION
  Report Type: 
  Country: None (occurrence: None)
  Receive Date: 20090731
  Receipt Date: 20090716
  Transmission Date: 20100115
  Serious: Yes (Hospitalization, Other)
  Sender: FDA-Public Use
  Company Number: ADE2009-0717

PATIENT
  Sex: Female

DRUGS (5)
  1. CIPROFLOXACIN [Suspect]
     Indication: ENDOCARDITIS BACTERIAL
     Dosage: 100MG,
  2. FLUCONAZOLE [Suspect]
     Indication: ENDOCARDITIS BACTERIAL
     Dosage: 400 MG,
  3. DAPTOMYCIN [Suspect]
     Indication: ENDOCARDITIS BACTERIAL
     Dosage: 500 MG,
  4. NEORAL [Suspect]
     Indication: APLASTIC ANAEMIA
  5. RIFAMPICIN [Suspect]
     Indication: ENDOCARDITIS BACTERIAL
     Dosage: 120MG,

REACTIONS (1)
  - DRUG INTERACTION [None]
